FAERS Safety Report 21838558 (Version 1)
Quarter: 2023Q1

REPORT INFORMATION
  Report Type: Spontaneous
  Country: US (occurrence: None)
  Receive Date: 20230108
  Receipt Date: 20230108
  Transmission Date: 20230417
  Serious: No
  Sender: FDA-Public Use
  Company Number: None

PATIENT
  Age: 43 Year
  Sex: Female
  Weight: 62.1 kg

DRUGS (1)
  1. AIMOVIG [Suspect]
     Active Substance: ERENUMAB-AOOE
     Indication: Migraine prophylaxis
     Route: 030
     Dates: start: 20220907

REACTIONS (5)
  - Injection site pain [None]
  - Injection site papule [None]
  - Injection site pruritus [None]
  - Injection site warmth [None]
  - Injection site erythema [None]

NARRATIVE: CASE EVENT DATE: 20230108
